FAERS Safety Report 7479338-X (Version None)
Quarter: 2011Q2

REPORT INFORMATION
  Report Type: 
  Country: None (occurrence: None)
  Receive Date: 20110513
  Receipt Date: 20110429
  Transmission Date: 20111010
  Serious: Yes (Hospitalization)
  Sender: FDA-Public Use
  Company Number: FR-GENENTECH-318483

PATIENT
  Sex: Male

DRUGS (9)
  1. PREDNISOLONE [Suspect]
     Indication: BURKITT'S LYMPHOMA
     Dosage: 200 MG, QAM
     Route: 042
     Dates: start: 20100505
  2. VINCRISTINE [Suspect]
     Indication: BURKITT'S LYMPHOMA
     Dosage: 2 MG, QAM
     Route: 042
     Dates: start: 20100501
  3. METHYLPEDNISOLONE SODIUM SUCCINATE [Suspect]
     Indication: BURKITT'S LYMPHOMA
     Dosage: 300 MG, QAM
     Route: 065
     Dates: start: 20100501
  4. METHOTREXATE [Suspect]
     Dosage: 15 MG, QAM
     Route: 042
     Dates: start: 20100502
  5. HYDROCORTISONE [Suspect]
     Indication: BURKITT'S LYMPHOMA
     Dosage: 15 MG, QAM
     Route: 065
     Dates: start: 20100502
  6. RITUXIMAB [Suspect]
     Indication: BURKITT'S LYMPHOMA
     Dosage: 700 MG, QAM
     Route: 042
     Dates: start: 20100430
  7. METHOTREXATE [Suspect]
     Indication: BURKITT'S LYMPHOMA
     Dosage: 5600 MG, QAM
     Route: 042
     Dates: start: 20100501, end: 20100501
  8. DOXORUBICIN HCL [Suspect]
     Indication: BURKITT'S LYMPHOMA
     Dosage: 112 MG, QAM
     Route: 042
     Dates: start: 20100502
  9. CYCLOPHOSPHAMIDE [Suspect]
     Indication: BURKITT'S LYMPHOMA
     Dosage: 1880 MG, UNK
     Route: 042
     Dates: start: 20100502

REACTIONS (2)
  - FEBRILE BONE MARROW APLASIA [None]
  - LUNG DISORDER [None]
